FAERS Safety Report 10229902 (Version 1)
Quarter: 2014Q2

REPORT INFORMATION
  Report Type: Spontaneous
  Country: US (occurrence: None)
  Receive Date: 20140506
  Receipt Date: 20140506
  Transmission Date: 20141212
  Serious: Yes (Hospitalization)
  Sender: FDA-Public Use
  Company Number: 1197905

PATIENT
  Sex: Female

DRUGS (1)
  1. AVASTATIN [Suspect]
     Indication: PRODUCT USED FOR UNKNOWN INDICATION

REACTIONS (5)
  - Posterior reversible encephalopathy syndrome [None]
  - Vision blurred [None]
  - Hallucination [None]
  - Convulsion [None]
  - Diplopia [None]
